FAERS Safety Report 18701577 (Version 2)
Quarter: 2025Q2

REPORT INFORMATION
  Report Type: Spontaneous
  Country: US (occurrence: US)
  Receive Date: 20210105
  Receipt Date: 20250629
  Transmission Date: 20250717
  Serious: Yes (Hospitalization, Other)
  Sender: AUROBINDO
  Company Number: US-MYLANLABS-2020M1107073

PATIENT
  Age: 52 Year
  Sex: Male

DRUGS (7)
  1. HYDROXYCHLOROQUINE [Suspect]
     Active Substance: HYDROXYCHLOROQUINE
     Indication: COVID-19
     Route: 065
  2. AZITHROMYCIN [Suspect]
     Active Substance: AZITHROMYCIN
     Indication: COVID-19
     Route: 065
  3. HEPARIN SODIUM [Suspect]
     Active Substance: HEPARIN SODIUM
     Indication: Coagulopathy
     Route: 042
  4. HEPARIN SODIUM [Suspect]
     Active Substance: HEPARIN SODIUM
     Indication: Thrombosis
  5. CEFTRIAXONE [Suspect]
     Active Substance: CEFTRIAXONE
     Indication: COVID-19
     Route: 065
  6. ALTEPLASE [Suspect]
     Active Substance: ALTEPLASE
     Indication: Respiratory failure
     Route: 040
  7. ALTEPLASE [Suspect]
     Active Substance: ALTEPLASE
     Indication: COVID-19

REACTIONS (2)
  - Rectal haemorrhage [Recovered/Resolved]
  - Off label use [Unknown]
